APPROVED DRUG PRODUCT: PHENTERMINE HYDROCHLORIDE
Active Ingredient: PHENTERMINE HYDROCHLORIDE
Strength: 37.5MG
Dosage Form/Route: TABLET;ORAL
Application: A040555 | Product #001
Applicant: LANNETT CO INC
Approved: Apr 15, 2005 | RLD: No | RS: No | Type: DISCN